FAERS Safety Report 19942484 (Version 3)
Quarter: 2022Q1

REPORT INFORMATION
  Report Type: Spontaneous
  Country: US (occurrence: US)
  Receive Date: 20211012
  Receipt Date: 20220104
  Transmission Date: 20220423
  Serious: Yes (Hospitalization)
  Sender: FDA-Public Use
  Company Number: US-NOVARTISTESTPH-NVSC2021US229165

PATIENT
  Age: 22 Year
  Sex: Female

DRUGS (1)
  1. ZARXIO [Suspect]
     Active Substance: FILGRASTIM-SNDZ
     Indication: Product used for unknown indication
     Dosage: 3 DF (BEGAN 3 DOSES)
     Route: 065
     Dates: start: 20210812

REACTIONS (4)
  - White blood cell count abnormal [Unknown]
  - Neutrophil count abnormal [Unknown]
  - Product temperature excursion issue [Unknown]
  - Therapy non-responder [Unknown]

NARRATIVE: CASE EVENT DATE: 20210816
